FAERS Safety Report 15532794 (Version 4)
Quarter: 2019Q3

REPORT INFORMATION
  Report Type: Spontaneous
  Country: US (occurrence: US)
  Receive Date: 20181019
  Receipt Date: 20190918
  Transmission Date: 20191004
  Serious: Yes (Other)
  Sender: FDA-Public Use
  Company Number: US-ASTRAZENECA-2018SF32586

PATIENT
  Age: 672 Month
  Sex: Female
  Weight: 85.7 kg

DRUGS (40)
  1. DEXILANT [Suspect]
     Active Substance: DEXLANSOPRAZOLE
     Route: 065
     Dates: start: 2010, end: 2016
  2. CLONAZEPAM. [Concomitant]
     Active Substance: CLONAZEPAM
  3. ACYCLOVIR. [Concomitant]
     Active Substance: ACYCLOVIR
  4. NEXIUM [Suspect]
     Active Substance: ESOMEPRAZOLE MAGNESIUM
     Route: 048
     Dates: start: 2010, end: 2016
  5. NEXIUM [Suspect]
     Active Substance: ESOMEPRAZOLE MAGNESIUM
     Route: 048
  6. NEXIUM [Suspect]
     Active Substance: ESOMEPRAZOLE MAGNESIUM
     Route: 048
  7. BIOTIN [Concomitant]
     Active Substance: BIOTIN
  8. NEXIUM [Suspect]
     Active Substance: ESOMEPRAZOLE MAGNESIUM
     Route: 048
     Dates: start: 201007, end: 201009
  9. GLIPIZIDE. [Concomitant]
     Active Substance: GLIPIZIDE
  10. POTASSIUM CHLORIDE. [Concomitant]
     Active Substance: POTASSIUM CHLORIDE
  11. TRAZODONE [Concomitant]
     Active Substance: TRAZODONE HYDROCHLORIDE
  12. CHOLECALCIFEROL [Concomitant]
     Active Substance: CHOLECALCIFEROL
  13. LORAZEPAM. [Concomitant]
     Active Substance: LORAZEPAM
  14. OMEPRAZOLE. [Suspect]
     Active Substance: OMEPRAZOLE
     Route: 065
     Dates: start: 200802
  15. OMEPRAZOLE. [Suspect]
     Active Substance: OMEPRAZOLE
     Dosage: PRILOSEC
     Route: 065
  16. PANTOPRAZOLE [Suspect]
     Active Substance: PANTOPRAZOLE
     Indication: GASTROOESOPHAGEAL REFLUX DISEASE
     Route: 065
     Dates: start: 200804, end: 200805
  17. ADVAIR HFA [Concomitant]
     Active Substance: FLUTICASONE PROPIONATE\SALMETEROL XINAFOATE
  18. HYDROXYZINE [Concomitant]
     Active Substance: HYDROXYZINE HYDROCHLORIDE
  19. MULTIVITAMIN [Concomitant]
     Active Substance: VITAMINS
  20. NYSTATIN. [Concomitant]
     Active Substance: NYSTATIN
  21. VALPROATE SODIUM. [Concomitant]
     Active Substance: VALPROATE SODIUM
  22. TENORETIC [Concomitant]
     Active Substance: ATENOLOL\CHLORTHALIDONE
  23. LASIX [Concomitant]
     Active Substance: FUROSEMIDE
  24. HYDROCODONE [Concomitant]
     Active Substance: HYDROCODONE
  25. LEXAPRO [Concomitant]
     Active Substance: ESCITALOPRAM OXALATE
  26. AZITHROMYCIN ANHYDROUS. [Concomitant]
     Active Substance: AZITHROMYCIN ANHYDROUS
  27. DEXILANT [Suspect]
     Active Substance: DEXLANSOPRAZOLE
     Route: 065
  28. METFORMIN [Concomitant]
     Active Substance: METFORMIN HYDROCHLORIDE
  29. NORCO [Concomitant]
     Active Substance: ACETAMINOPHEN\HYDROCODONE BITARTRATE
  30. FLUCONAZOLE. [Concomitant]
     Active Substance: FLUCONAZOLE
  31. ZOFRAN [Concomitant]
     Active Substance: ONDANSETRON HYDROCHLORIDE
  32. ATIVAN [Concomitant]
     Active Substance: LORAZEPAM
  33. HYDROXYZINE [Concomitant]
     Active Substance: HYDROXYZINE HYDROCHLORIDE
  34. CEFTRIAXONE. [Concomitant]
     Active Substance: CEFTRIAXONE
  35. SITAGLIPTIN [Concomitant]
     Active Substance: SITAGLIPTIN
  36. HYDROCHLOROTHIAZIDE. [Concomitant]
     Active Substance: HYDROCHLOROTHIAZIDE
  37. TOPIRAMATE. [Concomitant]
     Active Substance: TOPIRAMATE
  38. ESCITALOPRAM [Concomitant]
     Active Substance: ESCITALOPRAM OXALATE
  39. TRAMADOL. [Concomitant]
     Active Substance: TRAMADOL
  40. VANCOMYCIN [Concomitant]
     Active Substance: VANCOMYCIN

REACTIONS (3)
  - Chronic kidney disease [Unknown]
  - Renal failure [Unknown]
  - Acute kidney injury [Not Recovered/Not Resolved]

NARRATIVE: CASE EVENT DATE: 201309
